FAERS Safety Report 13167290 (Version 2)
Quarter: 2017Q1

REPORT INFORMATION
  Report Type: Report from Study
  Country: US (occurrence: HU)
  Receive Date: 20170131
  Receipt Date: 20170301
  Transmission Date: 20170428
  Serious: Yes (Other)
  Sender: FDA-Public Use
  Company Number: US-SUNOVION-2017SUN000337

PATIENT

DRUGS (3)
  1. INDACATEROL AND GLYCOPYRROLATE [Suspect]
     Active Substance: GLYCOPYRROLATE\INDACATEROL MALEATE
     Indication: CHRONIC OBSTRUCTIVE PULMONARY DISEASE
     Dosage: 1 DF, QD (IN THE MORNING)
     Route: 055
     Dates: start: 20170113, end: 20170113
  2. SAVULIN [Concomitant]
     Dosage: UNK
     Dates: start: 20170119
  3. DIMENIO [Concomitant]
     Dosage: UNK
     Dates: start: 20170119

REACTIONS (2)
  - Concomitant disease aggravated [Unknown]
  - Ventricular extrasystoles [Unknown]

NARRATIVE: CASE EVENT DATE: 20170113
